FAERS Safety Report 5857403-8 (Version None)
Quarter: 2008Q3

REPORT INFORMATION
  Report Type: 
  Country: None (occurrence: None)
  Receive Date: 20080826
  Receipt Date: 20080822
  Transmission Date: 20090109
  Serious: Yes (Other)
  Sender: FDA-Public Use
  Company Number: JP-BRISTOL-MYERS SQUIBB COMPANY-14284426

PATIENT
  Age: 41 Year
  Sex: Male

DRUGS (13)
  1. GATIFLOXACIN [Suspect]
     Indication: MYCOBACTERIAL INFECTION
     Route: 048
     Dates: start: 20080428, end: 20080527
  2. LUPRAC [Concomitant]
     Dosage: DOSE FORM-TABLETS
     Route: 048
     Dates: start: 20080429
  3. CLARITHROMYCIN [Concomitant]
     Dosage: DOSE FORM-TABLETS
     Route: 048
     Dates: start: 20080401
  4. SPIRONOLACTONE [Concomitant]
     Dosage: DOSE FORM-TABLETS
     Route: 048
  5. GLUCOSCAN [Concomitant]
     Dosage: DOSE FORM-TABLETS
     Route: 048
  6. TRACLEER [Concomitant]
     Dosage: DOSE FORM-TABLETS
     Route: 048
     Dates: start: 20060101
  7. FAMOTIDINE [Concomitant]
     Dosage: DOSE FORM-TABLETS
     Route: 048
  8. LASIX [Concomitant]
     Dosage: DOSE FORM-TABLETS
     Route: 048
  9. DEXTROSE 5% [Concomitant]
     Dosage: 5%GLUCOSE 250ML.
     Route: 041
     Dates: start: 20080312, end: 20080715
  10. BERAPROST SODIUM [Concomitant]
     Dosage: DOSE FORM-TABLETS
     Route: 048
     Dates: start: 20080313
  11. DOBUTAMINE HCL [Concomitant]
     Dosage: DOPUTAMIN-H 100MG+5%GLUCOSE 40ML.DOSE FORM-TABLETS
     Route: 041
     Dates: start: 20080312, end: 20080715
  12. DOPAMINE HCL [Concomitant]
  13. REVATIO [Concomitant]
     Route: 048
     Dates: start: 20080522

REACTIONS (1)
  - BLOOD GLUCOSE INCREASED [None]
